FAERS Safety Report 4305570-X (Version None)
Quarter: 2004Q1

REPORT INFORMATION
  Report Type: 
  Country: None (occurrence: None)
  Receive Date: 20040226
  Receipt Date: 20031202
  Transmission Date: 20041129
  Serious: No
  Sender: FDA-Public Use
  Company Number: US-BRISTOL-MYERS SQUIBB COMPANY-12448262

PATIENT
  Age: 33 Year
  Sex: Male

DRUGS (5)
  1. ABILIFY [Suspect]
     Indication: SCHIZOAFFECTIVE DISORDER
     Route: 048
     Dates: start: 20031101
  2. DEPAKOTE [Concomitant]
  3. WELLBUTRIN [Concomitant]
  4. CLOZARIL [Concomitant]
  5. LEXAPRO [Concomitant]

REACTIONS (1)
  - SOMNOLENCE [None]
